FAERS Safety Report 7192694-5 (Version None)
Quarter: 2010Q4

REPORT INFORMATION
  Report Type: 
  Country: None (occurrence: None)
  Receive Date: 20101222
  Receipt Date: 20101222
  Transmission Date: 20110411
  Serious: Yes (Life-Threatening, Hospitalization)
  Sender: FDA-Public Use
  Company Number: None

PATIENT
  Age: 82 Year
  Sex: Male
  Weight: 59 kg

DRUGS (2)
  1. LOSARTAN POTASSIUM [Suspect]
     Indication: HYPERTENSION
     Dosage: 50 MG BID PO
     Route: 048
     Dates: start: 20081002, end: 20101206
  2. LEVOFLOXACIN [Suspect]
     Indication: PNEUMONIA
     Dosage: 750 MG EVERY DAY PO
     Route: 048
     Dates: start: 20101202, end: 20101207

REACTIONS (10)
  - ANGIOEDEMA [None]
  - ANXIETY [None]
  - ASPIRATION [None]
  - BLOOD PRESSURE SYSTOLIC INCREASED [None]
  - BRONCHOSPASM [None]
  - GASTROOESOPHAGEAL REFLUX DISEASE [None]
  - HYPERTENSION [None]
  - RESPIRATORY DISTRESS [None]
  - STRIDOR [None]
  - TACHYPNOEA [None]
